FAERS Safety Report 18673181 (Version 1)
Quarter: 2020Q4

REPORT INFORMATION
  Report Type: Spontaneous
  Country: GB (occurrence: GB)
  Receive Date: 20201228
  Receipt Date: 20201228
  Transmission Date: 20210114
  Serious: Yes (Disabling, Other)
  Sender: FDA-Public Use
  Company Number: GB-MYLANLABS-2020M1104023

PATIENT
  Age: 93 Year
  Sex: Female
  Weight: 90.26 kg

DRUGS (2)
  1. MEMANTINE. [Suspect]
     Active Substance: MEMANTINE
     Dosage: 20 MILLIGRAM
     Route: 048
     Dates: start: 20201019, end: 20201111
  2. MEMANTINE. [Suspect]
     Active Substance: MEMANTINE
     Indication: DEMENTIA
     Dosage: 15 MILLIGRAM
     Route: 048
     Dates: end: 20201018

REACTIONS (4)
  - Skin discolouration [Unknown]
  - Thrombosis [Not Recovered/Not Resolved]
  - Pain in extremity [Unknown]
  - Peripheral swelling [Unknown]

NARRATIVE: CASE EVENT DATE: 20201020
